FAERS Safety Report 8227446-8 (Version None)
Quarter: 2012Q1

REPORT INFORMATION
  Report Type: 
  Country: None (occurrence: None)
  Receive Date: 20120322
  Receipt Date: 20120314
  Transmission Date: 20120608
  Serious: Yes (Hospitalization, Other)
  Sender: FDA-Public Use
  Company Number: US-BAYER-2011-050934

PATIENT
  Age: 26 Year
  Sex: Female
  Weight: 102 kg

DRUGS (10)
  1. HYDROCODONE BITARTRATE [Concomitant]
     Dosage: UNK
     Dates: start: 20080102
  2. MORPHINE [Concomitant]
     Dosage: 2 MG, QD
     Route: 042
     Dates: start: 20080301
  3. PHENERGAN [Concomitant]
     Dosage: 25 MG, QD
     Route: 042
  4. CLINDAMYCIN [Concomitant]
     Dosage: UNK UNK, QD
     Route: 048
     Dates: start: 20080320
  5. APAP TAB [Concomitant]
     Dosage: UNK
     Dates: start: 20080102
  6. PHENERGAN [Concomitant]
     Dosage: 25 MG, QID
     Route: 048
     Dates: start: 20080320
  7. DARVOCET-N 50 [Concomitant]
     Dosage: 100 UNK, UNK
     Route: 048
     Dates: start: 20080320
  8. TUSSIN DM [Concomitant]
     Indication: COUGH
     Dosage: UNK
     Route: 048
     Dates: start: 20080320
  9. YAZ [Suspect]
     Indication: PRODUCT USED FOR UNKNOWN INDICATION
     Dosage: UNK
     Dates: start: 20080109, end: 20080501
  10. VICODIN [Concomitant]

REACTIONS (11)
  - SCAR [None]
  - ANXIETY [None]
  - DEPRESSION [None]
  - CHOLECYSTITIS CHRONIC [None]
  - CONSTIPATION [None]
  - PAIN [None]
  - DYSPEPSIA [None]
  - DIARRHOEA [None]
  - ABDOMINAL DISTENSION [None]
  - GALLBLADDER DISORDER [None]
  - FLATULENCE [None]
